FAERS Safety Report 12225006 (Version 2)
Quarter: 2016Q4

REPORT INFORMATION
  Report Type: Other
  Country: US (occurrence: US)
  Receive Date: 20160331
  Receipt Date: 20161013
  Transmission Date: 20170207
  Serious: Yes (Hospitalization)
  Sender: FDA-Public Use
  Company Number: US-ACORDA-ACO_122482_2016

PATIENT
  Age: 62 Year
  Sex: Female

DRUGS (1)
  1. AMPYRA [Suspect]
     Active Substance: DALFAMPRIDINE
     Indication: MULTIPLE SCLEROSIS
     Dosage: 10 MG, BID
     Route: 048
     Dates: start: 20100519

REACTIONS (1)
  - Hip fracture [Recovered/Resolved]

NARRATIVE: CASE EVENT DATE: 20160312
